FAERS Safety Report 10627121 (Version 1)
Quarter: 2014Q4

REPORT INFORMATION
  Report Type: Spontaneous
  Country: GB (occurrence: GB)
  Receive Date: 20141204
  Receipt Date: 20141204
  Transmission Date: 20150529
  Serious: Yes (Other)
  Sender: FDA-Public Use
  Company Number: GB-BRISTOL-MYERS SQUIBB COMPANY-21671276

PATIENT
  Age: 83 Year
  Sex: Male
  Weight: 70 kg

DRUGS (6)
  1. BISOPROLOL [Concomitant]
     Active Substance: BISOPROLOL
  2. BECLOMETASONE DIPROPIONATE+FORMOTEROL FUMARATE [Concomitant]
     Dosage: 6/100 MCG
  3. HUMULIN NOS [Concomitant]
     Active Substance: INSULIN HUMAN
     Dosage: HUMULIN M3 INSULIN
  4. DIGOXIN. [Concomitant]
     Active Substance: DIGOXIN
  5. ELIQUIS [Suspect]
     Active Substance: APIXABAN
     Indication: ATRIAL FIBRILLATION
     Dates: start: 20140924, end: 20141022
  6. BUMETANIDE. [Concomitant]
     Active Substance: BUMETANIDE

REACTIONS (2)
  - Balance disorder [Recovered/Resolved]
  - Dizziness [Recovered/Resolved]

NARRATIVE: CASE EVENT DATE: 20140926
